FAERS Safety Report 9003145 (Version 2)
Quarter: 2013Q1

REPORT INFORMATION
  Report Type: Spontaneous
  Country: CN (occurrence: CN)
  Receive Date: 20130108
  Receipt Date: 20130301
  Transmission Date: 20140127
  Serious: Yes (Other)
  Sender: FDA-Public Use
  Company Number: CN-PFIZER INC-2013004339

PATIENT
  Age: 54 Year
  Sex: Male
  Weight: 50 kg

DRUGS (2)
  1. MS CONTIN [Suspect]
     Indication: ANALGESIC THERAPY
     Dosage: 30 MG, 1X/DAY
     Route: 048
     Dates: start: 20090629, end: 20090630
  2. MS CONTIN [Suspect]
     Dosage: 30 MG, 1X/DAY
     Route: 054
     Dates: start: 20090705, end: 20090706

REACTIONS (4)
  - Nausea [Recovering/Resolving]
  - Vomiting [Recovering/Resolving]
  - Abdominal distension [Recovering/Resolving]
  - Incorrect route of drug administration [Unknown]
